FAERS Safety Report 12933427 (Version 1)
Quarter: 2016Q4

REPORT INFORMATION
  Report Type: Spontaneous
  Country: FR (occurrence: FR)
  Receive Date: 20161111
  Receipt Date: 20161111
  Transmission Date: 20170207
  Serious: Yes (Other)
  Sender: FDA-Public Use
  Company Number: FR-TEVA-708926ROM

PATIENT
  Age: 87 Year
  Sex: Female

DRUGS (3)
  1. ELVORINE 100MG/10ML [Suspect]
     Active Substance: LEVOLEUCOVORIN CALCIUM
     Indication: COLON NEOPLASM
     Dosage: 300 MILLIGRAM DAILY; 300MG; ELEVENTH CYCLE OF FOLFOX PROTOCOL
     Route: 041
     Dates: start: 20160125, end: 20160125
  2. ELVORINE 25MG/2.5ML [Suspect]
     Active Substance: LEVOLEUCOVORIN CALCIUM
     Indication: COLON NEOPLASM
     Dosage: 20 MILLIGRAM DAILY; 20MG; ELEVENTH CYCLE OF FOLFOX PROTOCOL
     Route: 041
     Dates: start: 20160125, end: 20160125
  3. OXALIPLATINE TEVA 5 MG/ML [Suspect]
     Active Substance: OXALIPLATIN
     Indication: COLON NEOPLASM
     Dosage: 85 MG/M2 DAILY; 85 MG/M2; ELEVENTH CYCLE OF FOLFOX PROTOCOL
     Route: 041
     Dates: start: 20160125, end: 20160125

REACTIONS (5)
  - Dyspnoea [Recovered/Resolved]
  - Wheezing [Recovered/Resolved]
  - Oxygen saturation decreased [Recovered/Resolved]
  - Feeling abnormal [Recovered/Resolved]
  - Tachycardia [Recovered/Resolved]

NARRATIVE: CASE EVENT DATE: 20160125
